FAERS Safety Report 10071338 (Version 1)
Quarter: 2014Q2

REPORT INFORMATION
  Report Type: Spontaneous
  Country: US (occurrence: US)
  Receive Date: 20140410
  Receipt Date: 20140410
  Transmission Date: 20141212
  Serious: No
  Sender: FDA-Public Use
  Company Number: US-ASTRAZENECA-2014SE04078

PATIENT
  Sex: 0

DRUGS (2)
  1. CAPRELSA [Suspect]
     Route: 048
  2. CIPRO [Interacting]
     Route: 065

REACTIONS (1)
  - Drug interaction [Unknown]
